FAERS Safety Report 10506345 (Version 3)
Quarter: 2014Q4

REPORT INFORMATION
  Report Type: Report from Study
  Country: US (occurrence: US)
  Receive Date: 20141009
  Receipt Date: 20141023
  Transmission Date: 20150528
  Serious: Yes (Hospitalization)
  Sender: FDA-Public Use
  Company Number: US-BIOGENIDEC-2014BI087176

PATIENT
  Sex: Female

DRUGS (2)
  1. TYSABRI [Suspect]
     Active Substance: NATALIZUMAB
     Indication: MULTIPLE SCLEROSIS
     Route: 042
     Dates: start: 20110916
  2. TYSABRI [Suspect]
     Active Substance: NATALIZUMAB
     Indication: MULTIPLE SCLEROSIS
     Route: 042

REACTIONS (8)
  - Drug dose omission [Unknown]
  - Prescribed underdose [Not Recovered/Not Resolved]
  - Intestinal obstruction [Recovered/Resolved]
  - Gastric ulcer [Unknown]
  - Small intestine ulcer [Recovered/Resolved]
  - Pain in extremity [Not Recovered/Not Resolved]
  - Postoperative adhesion [Recovered/Resolved]
  - Gastric bypass [Unknown]

NARRATIVE: CASE EVENT DATE: 2013
